FAERS Safety Report 7617507-6 (Version None)
Quarter: 2011Q3

REPORT INFORMATION
  Report Type: 
  Country: None (occurrence: None)
  Receive Date: 20110718
  Receipt Date: 20110705
  Transmission Date: 20111222
  Serious: Yes (Other)
  Sender: FDA-Public Use
  Company Number: AT-ELI_LILLY_AND_COMPANY-AT201107000850

PATIENT
  Age: 48 Year
  Sex: Male

DRUGS (1)
  1. CYMBALTA [Suspect]
     Indication: PARAESTHESIA
     Dosage: 60 MG, QD
     Dates: start: 20110607

REACTIONS (4)
  - PHARYNGEAL OEDEMA [None]
  - THROAT IRRITATION [None]
  - HYPERSENSITIVITY [None]
  - OFF LABEL USE [None]
